FAERS Safety Report 9311853 (Version 2)
Quarter: 2013Q2

REPORT INFORMATION
  Report Type: Spontaneous
  Country: DE (occurrence: DE)
  Receive Date: 20130528
  Receipt Date: 20130607
  Transmission Date: 20140414
  Serious: Yes (Hospitalization, Disabling, Other)
  Sender: FDA-Public Use
  Company Number: GXKR2013DE001916

PATIENT
  Age: 85 Year
  Sex: Female

DRUGS (9)
  1. SIMVASTATIN [Suspect]
     Dosage: 40 MG/DAY
     Route: 048
  2. SIMVASTATIN [Interacting]
     Dosage: 20 MG/DAY
     Dates: start: 20130108
  3. CIPROFLOXACIN [Interacting]
     Indication: URINARY TRACT INFECTION
     Dosage: 500 MG/DAY
     Route: 048
     Dates: start: 20121227, end: 20130102
  4. PROCORALAN [Concomitant]
     Dosage: 5 MG/DAY
     Route: 048
  5. BELOC-ZOC MITE [Concomitant]
     Dosage: 47.5 MG/DAY
     Route: 048
  6. RAMIPRIL [Concomitant]
     Dosage: 5 MG/DAY
  7. LEVOTHYROXIN [Concomitant]
     Dosage: 75 UG/DAY
     Route: 048
  8. ALLOPURINOL [Concomitant]
     Dosage: 100 MG/DAY
     Route: 048
  9. PANTOPRAZOL [Concomitant]
     Dosage: UNK UKN, UNK

REACTIONS (11)
  - Rhabdomyolysis [Recovered/Resolved with Sequelae]
  - Myalgia [Recovered/Resolved with Sequelae]
  - Gait disturbance [Recovered/Resolved with Sequelae]
  - Aspartate aminotransferase increased [Recovered/Resolved with Sequelae]
  - Alanine aminotransferase increased [Recovered/Resolved with Sequelae]
  - Gamma-glutamyltransferase increased [Recovered/Resolved with Sequelae]
  - Renal failure acute [Recovered/Resolved with Sequelae]
  - Drug interaction [Recovered/Resolved with Sequelae]
  - Blood creatine phosphokinase increased [Recovered/Resolved with Sequelae]
  - Blood creatinine increased [Recovered/Resolved with Sequelae]
  - Blood lactate dehydrogenase increased [Recovered/Resolved with Sequelae]
